FAERS Safety Report 7444274-1 (Version None)
Quarter: 2011Q2

REPORT INFORMATION
  Report Type: 
  Country: None (occurrence: None)
  Receive Date: 20110429
  Receipt Date: 20110418
  Transmission Date: 20111010
  Serious: Yes (Hospitalization)
  Sender: FDA-Public Use
  Company Number: US-JNJFOC-20110312425

PATIENT
  Sex: Female
  Weight: 111.13 kg

DRUGS (3)
  1. UNKNOWN MEDICATION [Concomitant]
     Route: 065
  2. DURAGESIC [Suspect]
     Indication: FIBROMYALGIA
     Route: 062
  3. DURAGESIC [Suspect]
     Route: 062

REACTIONS (3)
  - ADVERSE EVENT [None]
  - DEVICE DISLOCATION [None]
  - APPLICATION SITE RASH [None]
